FAERS Safety Report 11584637 (Version 1)
Quarter: 2015Q4

REPORT INFORMATION
  Report Type: Spontaneous
  Country: US (occurrence: US)
  Receive Date: 20151001
  Receipt Date: 20151001
  Transmission Date: 20160304
  Serious: No
  Sender: FDA-Public Use
  Company Number: US-TORRENT-00000828

PATIENT
  Sex: Female

DRUGS (11)
  1. NABUMETONE 500 MG [Concomitant]
     Indication: ARTHRITIS
  2. VITAMIN D [Concomitant]
     Active Substance: CHOLECALCIFEROL
  3. ZOLPIDEM TARTRATE TABLETS [Suspect]
     Active Substance: ZOLPIDEM TARTRATE
     Indication: INSOMNIA
     Dosage: FIRST NIGHT TOOK ONE TABLET AND?DIDN^T SLEEP SO SHE TAKE TWO TABLETS BUT SHE STILL DIDN^T SLEEP
  4. PRILOSEC [Concomitant]
     Active Substance: OMEPRAZOLE MAGNESIUM
  5. GLUCOSAMINE DS [Concomitant]
  6. RAMIPRIL. [Concomitant]
     Active Substance: RAMIPRIL
     Indication: HYPERTENSION
  7. CALCIUM TABLETS [Concomitant]
  8. LORAZEPAM. [Concomitant]
     Active Substance: LORAZEPAM
  9. AMLODIPINE [Concomitant]
     Active Substance: AMLODIPINE BESYLATE
     Indication: HYPERTENSION
  10. VITAMIN C [Concomitant]
     Active Substance: ASCORBIC ACID
  11. STOOL SOFTNER [Concomitant]

REACTIONS (2)
  - Drug ineffective [Unknown]
  - Paradoxical drug reaction [Unknown]
